FAERS Safety Report 22215828 (Version 1)
Quarter: 2023Q2

REPORT INFORMATION
  Report Type: Spontaneous
  Country: US (occurrence: US)
  Receive Date: 20230417
  Receipt Date: 20230417
  Transmission Date: 20230722
  Serious: No
  Sender: FDA-Public Use
  Company Number: US-GLAXOSMITHKLINE-USCH2023016616

PATIENT
  Age: 6 Year
  Sex: Female

DRUGS (1)
  1. FLONASE SENSIMIST ALLERGY RELIEF [Suspect]
     Active Substance: FLUTICASONE FUROATE
     Indication: Product used for unknown indication
     Dosage: UNK
     Dates: start: 20230329, end: 20230412

REACTIONS (4)
  - Abdominal pain upper [Unknown]
  - Tongue pruritus [Unknown]
  - Dysgeusia [Unknown]
  - Rash [Unknown]

NARRATIVE: CASE EVENT DATE: 20230330
